FAERS Safety Report 18575096 (Version 1)
Quarter: 2020Q4

REPORT INFORMATION
  Report Type: Spontaneous
  Country: JP (occurrence: JP)
  Receive Date: 20201203
  Receipt Date: 20201203
  Transmission Date: 20210114
  Serious: Yes (Other)
  Sender: FDA-Public Use
  Company Number: JP-ASTRAZENECA-2020SF57807

PATIENT

DRUGS (1)
  1. LYNPARZA [Suspect]
     Active Substance: OLAPARIB
     Dosage: DOSE UNKNOWN
     Route: 048

REACTIONS (16)
  - Haemoglobin decreased [Unknown]
  - Haematocrit decreased [Unknown]
  - Platelet count decreased [Unknown]
  - Aspartate aminotransferase increased [Unknown]
  - Fatigue [Unknown]
  - Stomatitis [Unknown]
  - Alanine aminotransferase increased [Unknown]
  - Insomnia [Unknown]
  - Ear congestion [Unknown]
  - Chest discomfort [Unknown]
  - Chest pain [Unknown]
  - White blood cell count decreased [Unknown]
  - Malaise [Unknown]
  - Decreased appetite [Unknown]
  - Extradural haematoma [Unknown]
  - Neutrophil count decreased [Unknown]
